FAERS Safety Report 13132328 (Version 2)
Quarter: 2017Q1

REPORT INFORMATION
  Report Type: Spontaneous
  Country: FR (occurrence: FR)
  Receive Date: 20170120
  Receipt Date: 20170120
  Transmission Date: 20170428
  Serious: Yes (Other)
  Sender: FDA-Public Use
  Company Number: FR-ABBVIE-17K-056-1838019-00

PATIENT
  Age: 42 Year
  Sex: Male

DRUGS (1)
  1. HUMIRA [Suspect]
     Active Substance: ADALIMUMAB
     Indication: CROHN^S DISEASE
     Route: 058
     Dates: start: 201403, end: 201610

REACTIONS (3)
  - Neuroendocrine tumour [Recovered/Resolved]
  - Papillary thyroid cancer [Recovered/Resolved]
  - Duodenal operation [Unknown]

NARRATIVE: CASE EVENT DATE: 2015
